FAERS Safety Report 13429914 (Version 2)
Quarter: 2017Q2

REPORT INFORMATION
  Report Type: Report from Study
  Country: None (occurrence: US)
  Receive Date: 20170412
  Receipt Date: 20170609
  Transmission Date: 20170830
  Serious: Yes (Hospitalization, Other)
  Sender: FDA-Public Use
  Company Number: US-ABBVIE-17K-163-1937183-00

PATIENT
  Age: 53 Year
  Sex: Male

DRUGS (5)
  1. FLOXIN [Concomitant]
     Active Substance: OFLOXACIN
     Indication: DIURETIC THERAPY
  2. NADOLOL. [Concomitant]
     Active Substance: NADOLOL
     Indication: HYPERTENSION
  3. HUMIRA [Suspect]
     Active Substance: ADALIMUMAB
     Indication: PSORIASIS
     Route: 058
     Dates: start: 2005, end: 201606
  4. HUMIRA [Suspect]
     Active Substance: ADALIMUMAB
     Route: 058
     Dates: start: 201612
  5. AMLODIPINE [Concomitant]
     Active Substance: AMLODIPINE BESYLATE
     Indication: HYPERTENSION

REACTIONS (14)
  - Ligament rupture [Recovered/Resolved]
  - Incision site inflammation [Recovered/Resolved]
  - Foot fracture [Recovered/Resolved]
  - Mobility decreased [Recovering/Resolving]
  - Limb crushing injury [Recovered/Resolved]
  - Post procedural discharge [Recovered/Resolved]
  - Traumatic haemorrhage [Recovered/Resolved]
  - Post procedural swelling [Recovering/Resolving]
  - Oedema peripheral [Recovering/Resolving]
  - Road traffic accident [Recovered/Resolved]
  - Postoperative wound infection [Recovered/Resolved]
  - Impaired healing [Recovering/Resolving]
  - Skin discolouration [Recovering/Resolving]
  - Incision site erythema [Recovered/Resolved]

NARRATIVE: CASE EVENT DATE: 2016
